FAERS Safety Report 4293509-5 (Version None)
Quarter: 2004Q1

REPORT INFORMATION
  Report Type: 
  Country: None (occurrence: None)
  Receive Date: 20040210
  Receipt Date: 20040130
  Transmission Date: 20041129
  Serious: No
  Sender: FDA-Public Use
  Company Number: 2004PK00229

PATIENT
  Age: 58 Year
  Sex: Female

DRUGS (3)
  1. XYLOCAINE [Suspect]
     Indication: ENDOSCOPY UPPER GASTROINTESTINAL TRACT
     Dosage: 2 SPRAY
     Dates: start: 20031101
  2. XYLOCAINE [Suspect]
     Indication: LOCAL ANAESTHESIA
     Dosage: 2 SPRAY
     Dates: start: 20031101
  3. TETRACAINE POLYGYL STERILE OPHTHALMIC SOLUTION [Suspect]
     Indication: LOCAL ANAESTHESIA
     Dates: start: 20031101

REACTIONS (3)
  - ANAESTHETIC COMPLICATION [None]
  - ERYTHEMA [None]
  - RESPIRATORY DISTRESS [None]
